FAERS Safety Report 13190489 (Version 3)
Quarter: 2017Q2

REPORT INFORMATION
  Report Type: Spontaneous
  Country: CA (occurrence: CA)
  Receive Date: 20170206
  Receipt Date: 20170505
  Transmission Date: 20170830
  Serious: Yes (Hospitalization)
  Sender: FDA-Public Use
  Company Number: CA-PFIZER INC-2017051054

PATIENT
  Age: 70 Year
  Sex: Female

DRUGS (11)
  1. IBRANCE [Suspect]
     Active Substance: PALBOCICLIB
     Dosage: UNK
     Dates: start: 20170126
  2. ADVIL (MEFENAMIC ACID) [Concomitant]
     Active Substance: MEFENAMIC ACID
     Dosage: UNK, AS NEEDED
  3. LACTULOSE. [Concomitant]
     Active Substance: LACTULOSE
  4. SENOKOT [Concomitant]
     Active Substance: SENNOSIDES
  5. IBRANCE [Suspect]
     Active Substance: PALBOCICLIB
     Indication: BREAST CANCER METASTATIC
     Dosage: 100 MG, CYCLIC (DAILY FOR 21 DAYS AND 7 DAYS OFF)
     Route: 048
     Dates: start: 20170117, end: 20170124
  6. PREVACID [Concomitant]
     Active Substance: LANSOPRAZOLE
     Dosage: 30 MG, DAILY
  7. HYDROMORPHONE [Concomitant]
     Active Substance: HYDROMORPHONE
     Dosage: 2-3 TABLETS EVERY 3 OR 4 HOURS, AS NEEDED
  8. CALCIUM + VITAMIN D /01483701/ [Concomitant]
     Active Substance: CALCIUM\VITAMIN D
  9. LORAZEPAM. [Concomitant]
     Active Substance: LORAZEPAM
     Dosage: 1 MG, OCASSIONALLY
  10. LETROZOLE. [Concomitant]
     Active Substance: LETROZOLE
     Dosage: 2.5 MG, DAILY
     Dates: start: 20170425
  11. GRAVOL [Concomitant]
     Active Substance: DIMENHYDRINATE
     Dosage: UNK, AS NEEDED

REACTIONS (3)
  - Bacterial infection [Unknown]
  - Chills [Unknown]
  - Feeling cold [Unknown]
